FAERS Safety Report 7331856-0 (Version None)
Quarter: 2011Q1

REPORT INFORMATION
  Report Type: 
  Country: None (occurrence: None)
  Receive Date: 20110304
  Receipt Date: 20091104
  Transmission Date: 20110831
  Serious: No
  Sender: FDA-Public Use
  Company Number: US-PFIZER INC-2009293932

PATIENT
  Sex: Male
  Weight: 161 kg

DRUGS (1)
  1. DILANTIN [Suspect]
     Dosage: 400 MG, 3X/DAY

REACTIONS (1)
  - DRUG LEVEL BELOW THERAPEUTIC [None]
